FAERS Safety Report 4295344-0 (Version None)
Quarter: 2004Q1

REPORT INFORMATION
  Report Type: 
  Country: None (occurrence: None)
  Receive Date: 20040216
  Receipt Date: 20030620
  Transmission Date: 20041129
  Serious: No
  Sender: FDA-Public Use
  Company Number: US-GLAXOSMITHKLINE-A0413306A

PATIENT
  Age: 49 Year
  Sex: Male

DRUGS (2)
  1. LAMICTAL [Suspect]
     Dosage: 250MG TWICE PER DAY
     Route: 048
  2. NORVASC [Concomitant]

REACTIONS (1)
  - DRUG SCREEN FALSE POSITIVE [None]
